FAERS Safety Report 9933644 (Version 2)
Quarter: 2014Q1

REPORT INFORMATION
  Report Type: Report from Study
  Country: US (occurrence: US)
  Receive Date: 20140228
  Receipt Date: 20140228
  Transmission Date: 20141002
  Serious: No
  Sender: FDA-Public Use
  Company Number: US-MYLANLABS-2013S1027637

PATIENT
  Age: 32 Year
  Sex: Female

DRUGS (2)
  1. AMNESTEEM CAPSULES [Suspect]
     Indication: ACNE
     Dates: start: 20131024, end: 20131121
  2. FERROUS SULFATE [Concomitant]

REACTIONS (1)
  - Dizziness [Recovered/Resolved]
